FAERS Safety Report 7896626-3 (Version None)
Quarter: 2011Q4

REPORT INFORMATION
  Report Type: 
  Country: None (occurrence: None)
  Receive Date: 20111107
  Receipt Date: 20111027
  Transmission Date: 20120403
  Serious: Yes (Hospitalization)
  Sender: FDA-Public Use
  Company Number: US-BIOGENIDEC-2011BI041023

PATIENT
  Sex: Female

DRUGS (1)
  1. AVONEX [Suspect]
     Indication: MULTIPLE SCLEROSIS
     Route: 030
     Dates: start: 20080601

REACTIONS (10)
  - CEREBROVASCULAR ACCIDENT [None]
  - DISTURBANCE IN ATTENTION [None]
  - UPPER LIMB FRACTURE [None]
  - ABASIA [None]
  - CONFUSIONAL STATE [None]
  - ROAD TRAFFIC ACCIDENT [None]
  - MOBILITY DECREASED [None]
  - MUSCULOSKELETAL DISORDER [None]
  - INCOHERENT [None]
  - COORDINATION ABNORMAL [None]
